FAERS Safety Report 19117311 (Version 1)
Quarter: 2021Q2

REPORT INFORMATION
  Report Type: Spontaneous
  Country: GB (occurrence: GB)
  Receive Date: 20210409
  Receipt Date: 20210409
  Transmission Date: 20210717
  Serious: Yes (Disabling)
  Sender: FDA-Public Use
  Company Number: GB-BAYER-2021-116723

PATIENT
  Age: 35 Year
  Sex: Male
  Weight: 54.88 kg

DRUGS (2)
  1. OFLOXACIN. [Suspect]
     Active Substance: OFLOXACIN
     Indication: ILL-DEFINED DISORDER
     Dosage: 400 MG, QD
     Route: 048
     Dates: start: 20210309, end: 20210330
  2. CIPROXIN 500 MG [Suspect]
     Active Substance: CIPROFLOXACIN
     Indication: ILL-DEFINED DISORDER
     Dosage: 500 MG, BID
     Route: 048
     Dates: start: 20210329, end: 20210331

REACTIONS (9)
  - Asthenia [None]
  - Pain [None]
  - Fatigue [None]
  - Abdominal pain [None]
  - Genital pain [None]
  - Renal pain [None]
  - Medication error [Unknown]
  - Paraesthesia [None]
  - Adverse event [None]

NARRATIVE: CASE EVENT DATE: 20210310
